FAERS Safety Report 18459690 (Version 1)
Quarter: 2020Q4

REPORT INFORMATION
  Report Type: Spontaneous
  Country: AR (occurrence: AR)
  Receive Date: 20201104
  Receipt Date: 20201104
  Transmission Date: 20210114
  Serious: Yes (Other)
  Sender: FDA-Public Use
  Company Number: AR-AMGEN-ARGSP2020177139

PATIENT
  Age: 55 Year
  Sex: Female

DRUGS (3)
  1. ENBREL [Suspect]
     Active Substance: ETANERCEPT
     Dosage: UNK  *SINGLE
     Route: 065
     Dates: start: 2020
  2. ENBREL [Suspect]
     Active Substance: ETANERCEPT
     Indication: RHEUMATOID ARTHRITIS
     Dosage: 50 MG, WEEKLY
     Route: 065
     Dates: start: 20080814, end: 201911
  3. ENBREL [Suspect]
     Active Substance: ETANERCEPT
     Dosage: 50 MG (EVERY 15 OR 20 DAYS)
     Route: 065
     Dates: start: 201911

REACTIONS (5)
  - Incorrect product formulation administered [Unknown]
  - Product dispensing error [Unknown]
  - Off label use [Unknown]
  - Product use issue [Unknown]
  - Renal failure [Unknown]

NARRATIVE: CASE EVENT DATE: 201911
